FAERS Safety Report 5531554-X (Version None)
Quarter: 2007Q4

REPORT INFORMATION
  Report Type: 
  Country: None (occurrence: None)
  Receive Date: 20071203
  Receipt Date: 20071126
  Transmission Date: 20080405
  Serious: Yes (Other)
  Sender: FDA-Public Use
  Company Number: PHEH2007US15190

PATIENT
  Sex: Female

DRUGS (1)
  1. ZELNORM [Suspect]
     Dates: start: 20060201, end: 20070201

REACTIONS (3)
  - CARDIOVASCULAR DISORDER [None]
  - GASTRECTOMY [None]
  - GASTRIC ULCER [None]
